FAERS Safety Report 17735170 (Version 3)
Quarter: 2020Q4

REPORT INFORMATION
  Report Type: Report from Study
  Country: BR (occurrence: BR)
  Receive Date: 20200501
  Receipt Date: 20201102
  Transmission Date: 20210113
  Serious: No
  Sender: FDA-Public Use
  Company Number: BR-SHIRE-BR202010068

PATIENT
  Sex: Female
  Weight: 70 kg

DRUGS (7)
  1. VENVANSE [Suspect]
     Active Substance: LISDEXAMFETAMINE DIMESYLATE
     Indication: ATTENTION DEFICIT HYPERACTIVITY DISORDER
     Dosage: 70 MILLIGRAM, QD
     Route: 065
     Dates: start: 2016
  2. VENVANSE [Suspect]
     Active Substance: LISDEXAMFETAMINE DIMESYLATE
     Dosage: 70 MILLIGRAM, 1X/DAY:QD
     Route: 048
  3. VENVANSE [Suspect]
     Active Substance: LISDEXAMFETAMINE DIMESYLATE
     Dosage: 30 MILLIGRAM
     Route: 065
  4. ENTYVIO [Suspect]
     Active Substance: VEDOLIZUMAB
     Dosage: 300 MILLIGRAM, EVERY 8 WK
     Route: 050
     Dates: start: 20190401
  5. YASMIN [Concomitant]
     Active Substance: DROSPIRENONE\ETHINYL ESTRADIOL
     Indication: MENSTRUATION IRREGULAR
     Dosage: UNK UNK, QD
     Route: 065
  6. ENTYVIO [Suspect]
     Active Substance: VEDOLIZUMAB
     Indication: CROHN^S DISEASE
     Dosage: 300 MILLIGRAM, EVERY 8 WK
     Route: 042
     Dates: start: 20190401
  7. DEXILANT [Concomitant]
     Active Substance: DEXLANSOPRAZOLE
     Indication: PRODUCT USED FOR UNKNOWN INDICATION
     Dosage: UNK UNK, QD

REACTIONS (8)
  - Vaginal haemorrhage [Unknown]
  - Product availability issue [Unknown]
  - Condition aggravated [Not Recovered/Not Resolved]
  - Product dose omission issue [Unknown]
  - Menstruation irregular [Unknown]
  - Coronavirus infection [Unknown]
  - Inappropriate schedule of product administration [Unknown]
  - Loss of personal independence in daily activities [Not Recovered/Not Resolved]
